FAERS Safety Report 9164216 (Version 1)
Quarter: 2013Q1

REPORT INFORMATION
  Report Type: Spontaneous
  Country: US (occurrence: US)
  Receive Date: 20130315
  Receipt Date: 20130315
  Transmission Date: 20140127
  Serious: No
  Sender: FDA-Public Use
  Company Number: US-BIOGENIDEC-2013BI020912

PATIENT
  Age: 63 Year
  Sex: Female

DRUGS (2)
  1. AVONEX [Suspect]
     Indication: MULTIPLE SCLEROSIS
     Route: 030
     Dates: start: 20130131, end: 20130222
  2. AVONEX [Suspect]
     Indication: MULTIPLE SCLEROSIS
     Route: 030
     Dates: start: 20130222

REACTIONS (5)
  - Hypoaesthesia [Unknown]
  - Electric shock [Unknown]
  - Gastrointestinal disorder [Unknown]
  - Vomiting [Recovered/Resolved]
  - Headache [Recovered/Resolved]
